FAERS Safety Report 9692872 (Version 1)
Quarter: 2013Q4

REPORT INFORMATION
  Report Type: Spontaneous
  Country: US (occurrence: None)
  Receive Date: 20131115
  Receipt Date: 20131115
  Transmission Date: 20140711
  Serious: Yes (Death)
  Sender: FDA-Public Use
  Company Number: None

PATIENT
  Age: 91 Year
  Sex: Female
  Weight: 60 kg

DRUGS (1)
  1. COUMADIN [Suspect]
     Indication: ARRHYTHMIA
     Route: 048

REACTIONS (4)
  - Unresponsive to stimuli [None]
  - Haemorrhage intracranial [None]
  - Respiratory distress [None]
  - Blood urine present [None]
